FAERS Safety Report 9718964 (Version 1)
Quarter: 2013Q4

REPORT INFORMATION
  Report Type: Report from Study
  Country: TR (occurrence: TR)
  Receive Date: 20131127
  Receipt Date: 20131127
  Transmission Date: 20140711
  Serious: Yes (Other)
  Sender: FDA-Public Use
  Company Number: TR-US-EMD SERONO, INC.-7251955

PATIENT
  Age: 27 Year
  Sex: Female
  Weight: 52 kg

DRUGS (4)
  1. REBIF [Suspect]
     Indication: RELAPSING-REMITTING MULTIPLE SCLEROSIS
     Route: 058
     Dates: start: 200710
  2. BRUFEN /00109201/ [Suspect]
     Indication: ANALGESIC THERAPY
     Route: 048
     Dates: start: 200710
  3. BRUFEN /00109201/ [Suspect]
     Indication: ANTIINFLAMMATORY THERAPY
  4. DODEX [Suspect]
     Indication: VITAMIN B COMPLEX DEFICIENCY
     Route: 030
     Dates: start: 200710

REACTIONS (4)
  - Coeliac disease [Not Recovered/Not Resolved]
  - Osteoporosis [Not Recovered/Not Resolved]
  - Trigeminal neuralgia [Not Recovered/Not Resolved]
  - Fibromyalgia [Not Recovered/Not Resolved]
